FAERS Safety Report 5048108-4 (Version None)
Quarter: 2006Q3

REPORT INFORMATION
  Report Type: 
  Country: None (occurrence: None)
  Receive Date: 20060705
  Receipt Date: 20060614
  Transmission Date: 20061208
  Serious: Yes (Hospitalization, Other)
  Sender: FDA-Public Use
  Company Number: US200606000509

PATIENT
  Age: 63 Year
  Sex: Male

DRUGS (3)
  1. CIALIS [Suspect]
     Indication: OFF LABEL USE
     Dates: start: 20060520
  2. LEVOXYL [Concomitant]
  3. ZOCOR [Concomitant]

REACTIONS (1)
  - CORONARY ARTERY STENOSIS [None]
